FAERS Safety Report 17649847 (Version 1)
Quarter: 2020Q2

REPORT INFORMATION
  Report Type: Spontaneous
  Country: US (occurrence: US)
  Receive Date: 20200409
  Receipt Date: 20200409
  Transmission Date: 20200713
  Serious: Yes (Other)
  Sender: FDA-Public Use
  Company Number: US-PFIZER INC-2020147026

PATIENT
  Age: 69 Year
  Sex: Female

DRUGS (1)
  1. IBRANCE [Suspect]
     Active Substance: PALBOCICLIB
     Indication: BREAST CANCER METASTATIC
     Dosage: 100 MG, UNK
     Dates: start: 20190226

REACTIONS (3)
  - Leukopenia [Unknown]
  - Hot flush [Unknown]
  - Osteopenia [Unknown]

NARRATIVE: CASE EVENT DATE: 20190226
